FAERS Safety Report 20766274 (Version 1)
Quarter: 2022Q2

REPORT INFORMATION
  Report Type: Report from Study
  Country: US (occurrence: US)
  Receive Date: 20220428
  Receipt Date: 20220428
  Transmission Date: 20220721
  Serious: No
  Sender: FDA-Public Use
  Company Number: US-INCYTE CORPORATION-2022IN002762

PATIENT

DRUGS (1)
  1. JAKAFI [Suspect]
     Active Substance: RUXOLITINIB
     Indication: Myelofibrosis
     Dosage: 20 MILLIGRAM (10MG X 2) , BID
     Route: 048
     Dates: start: 20180417

REACTIONS (1)
  - Product availability issue [Unknown]

NARRATIVE: CASE EVENT DATE: 20211201
